FAERS Safety Report 4431063-5 (Version None)
Quarter: 2004Q3

REPORT INFORMATION
  Report Type: 
  Country: None (occurrence: None)
  Receive Date: 20040817
  Receipt Date: 20040805
  Transmission Date: 20050211
  Serious: Yes (Disabling)
  Sender: FDA-Public Use
  Company Number: 2004PK01352

PATIENT
  Age: 56 Year
  Sex: Female
  Weight: 87 kg

DRUGS (4)
  1. SEROQUEL [Suspect]
     Indication: SCHIZOPHRENIA
     Dosage: 300 MG DAILY PO
     Route: 048
     Dates: start: 20040501
  2. CIPRAMIL [Suspect]
     Indication: SCHIZOPHRENIA
     Dosage: 30 MG DAILY
     Dates: start: 20040401
  3. RISPERDAL [Suspect]
     Indication: SCHIZOPHRENIA
     Dosage: 4 MG DAILY
     Dates: start: 20031001, end: 20040501
  4. REMERGIL [Suspect]
     Indication: SCHIZOPHRENIA
     Dosage: 45 MG DAILY
     Dates: start: 20031001, end: 20040401

REACTIONS (4)
  - CEREBELLAR INFARCTION [None]
  - HYPERTENSION [None]
  - PULMONARY EMBOLISM [None]
  - THROMBOCYTHAEMIA [None]
